FAERS Safety Report 15726072 (Version 1)
Quarter: 2018Q4

REPORT INFORMATION
  Report Type: Spontaneous
  Country: US (occurrence: US)
  Receive Date: 20181216
  Receipt Date: 20181216
  Transmission Date: 20190205
  Serious: Yes (Other)
  Sender: FDA-Public Use
  Company Number: US-SUPERNUS PHARMACEUTICALS, INC.-2018SUP00039

PATIENT
  Age: 19 Year
  Sex: Male
  Weight: 63.49 kg

DRUGS (3)
  1. ^CITRON PA^ [Concomitant]
  2. RITALIN [Concomitant]
     Active Substance: METHYLPHENIDATE HYDROCHLORIDE
  3. TROKENDI XR [Suspect]
     Active Substance: TOPIRAMATE
     Indication: SEIZURE
     Dosage: 100 MG, 1X/DAY
     Route: 048
     Dates: start: 2017

REACTIONS (2)
  - Seizure [Recovering/Resolving]
  - Product dose omission [Unknown]

NARRATIVE: CASE EVENT DATE: 20180205
